FAERS Safety Report 15398547 (Version 1)
Quarter: 2018Q3

REPORT INFORMATION
  Report Type: Spontaneous
  Country: US (occurrence: US)
  Receive Date: 20180913
  Receipt Date: 20180913
  Transmission Date: 20181010
  Serious: No
  Sender: FDA-Public Use
  Company Number: None

PATIENT
  Age: 61 Year
  Sex: Female

DRUGS (6)
  1. OXYCODONE 20MG IR [Concomitant]
     Dates: start: 20180501, end: 20180911
  2. OXYCARBAZEPINE 300MG [Concomitant]
     Dates: start: 20180601, end: 20180911
  3. AMITRIPTYLINE 150MG TABS [Concomitant]
     Dates: start: 20170401, end: 20180829
  4. AMITIZIA 24MCG [Concomitant]
     Dates: start: 20180401, end: 20180828
  5. OTEZLA [Suspect]
     Active Substance: APREMILAST
     Indication: PSORIASIS
     Route: 048
     Dates: start: 20170511, end: 20180913
  6. FLUOXETINE 20MG CAPS [Concomitant]
     Dates: start: 20170601, end: 20180911

REACTIONS (1)
  - Dry skin [None]

NARRATIVE: CASE EVENT DATE: 20180911
